FAERS Safety Report 6069444-9 (Version None)
Quarter: 2009Q1

REPORT INFORMATION
  Report Type: 
  Country: None (occurrence: None)
  Receive Date: 20090206
  Receipt Date: 20090130
  Transmission Date: 20090719
  Serious: Yes (Death)
  Sender: FDA-Public Use
  Company Number: IT-GENENTECH-276559

PATIENT

DRUGS (4)
  1. ACTIVASE [Suspect]
     Indication: PULMONARY EMBOLISM
     Dosage: 10 MG, UNK
     Route: 040
  2. ACTIVASE [Suspect]
     Dosage: 90 MG, CONTINUOUS
     Route: 042
  3. UNFRACTIONATED HEPARIN [Concomitant]
     Indication: PULMONARY EMBOLISM
     Dosage: UNK
     Route: 042
  4. ANTICOAGULANT [Concomitant]
     Indication: ANTICOAGULANT THERAPY
     Dosage: UNK
     Route: 048

REACTIONS (1)
  - DEATH [None]
